FAERS Safety Report 14601738 (Version 1)
Quarter: 2018Q1

REPORT INFORMATION
  Report Type: Spontaneous
  Country: US (occurrence: US)
  Receive Date: 20180306
  Receipt Date: 20180306
  Transmission Date: 20180509
  Serious: Yes (Other)
  Sender: FDA-Public Use
  Company Number: US-SHIRE-US201807924

PATIENT
  Age: 67 Year
  Sex: Female

DRUGS (1)
  1. XIIDRA [Suspect]
     Active Substance: LIFITEGRAST
     Indication: PRODUCT USED FOR UNKNOWN INDICATION
     Dosage: UNK
     Route: 047
     Dates: start: 20180219

REACTIONS (3)
  - Lip swelling [Recovered/Resolved]
  - Respiratory distress [Recovered/Resolved]
  - Instillation site erythema [Recovered/Resolved]

NARRATIVE: CASE EVENT DATE: 20180219
